APPROVED DRUG PRODUCT: ACETAMINOPHEN AND CODEINE PHOSPHATE
Active Ingredient: ACETAMINOPHEN; CODEINE PHOSPHATE
Strength: 300MG;30MG
Dosage Form/Route: TABLET;ORAL
Application: A040443 | Product #002
Applicant: WATSON LABORATORIES INC FLORIDA
Approved: Jan 22, 2003 | RLD: No | RS: No | Type: DISCN